FAERS Safety Report 8516536-8 (Version None)
Quarter: 2012Q3

REPORT INFORMATION
  Report Type: 
  Country: None (occurrence: None)
  Receive Date: 20120711
  Receipt Date: 20120711
  Transmission Date: 20120928
  Serious: Yes (Other)
  Sender: FDA-Public Use
  Company Number: None

PATIENT
  Age: 58 Year
  Sex: Female
  Weight: 90.7194 kg

DRUGS (1)
  1. ERGOCALCIFEROL [Suspect]
     Indication: VITAMIN D DECREASED
     Dosage: 50,000 IU WEEKLY PO
     Route: 048
     Dates: start: 20120612, end: 20120709

REACTIONS (1)
  - HOT FLUSH [None]
